FAERS Safety Report 7710951 (Version 2)
Quarter: 2012Q4

REPORT INFORMATION
  Report Type: 
  Country: US (occurrence: US)
  Receive Date: 20101214
  Receipt Date: 20121023
  Transmission Date: 20130627
  Serious: Yes (Other)
  Sender: FDA-Public Use
  Company Number: US-AMGEN-QUU379415

PATIENT
  Age: 66 Year
  Sex: Female

DRUGS (7)
  1. ENBREL [Suspect]
     Indication: RHEUMATOID ARTHRITIS
     Dosage: 50 mg, qwk
     Route: 058
     Dates: start: 20030530
  2. ENBREL [Suspect]
     Dosage: 50 mg, weekly
     Dates: start: 2002, end: 201001
  3. METHOTREXATE [Suspect]
     Dosage: 2.5 mg, weekly
     Route: 048
     Dates: start: 2002
  4. METHOTREXATE [Suspect]
     Dosage: 2.5 mg, 6 times/wk
     Route: 048
     Dates: start: 20030101
  5. FOSAMAX [Concomitant]
     Dosage: UNK
  6. SIMVASTATIN [Concomitant]
     Dosage: UNK
  7. ZYRTEC [Concomitant]
     Dosage: UNK

REACTIONS (1)
  - Malignant melanoma [Recovered/Resolved]
